FAERS Safety Report 7280963-X (Version None)
Quarter: 2011Q1

REPORT INFORMATION
  Report Type: 
  Country: None (occurrence: None)
  Receive Date: 20110208
  Receipt Date: 20110128
  Transmission Date: 20110831
  Serious: Yes (Other)
  Sender: FDA-Public Use
  Company Number: CHPA2011US00636

PATIENT
  Age: 83 Year
  Sex: Male
  Weight: 77.098 kg

DRUGS (4)
  1. MINERAL ICE [Suspect]
     Indication: ARTHRALGIA
     Dosage: UNK
     Route: 061
     Dates: start: 19660101
  2. TRAMADOL HCL [Concomitant]
     Indication: PAIN
     Route: 048
  3. EXCEDRIN UNKNOWN [Suspect]
     Dosage: UNK , UNK
     Route: 048
  4. TYLENOL-500 [Concomitant]
     Indication: PAIN
     Route: 048

REACTIONS (6)
  - HIP ARTHROPLASTY [None]
  - BODY HEIGHT DECREASED [None]
  - PARKINSON'S DISEASE [None]
  - KNEE ARTHROPLASTY [None]
  - BACK DISORDER [None]
  - DRUG INEFFECTIVE [None]
